FAERS Safety Report 18702079 (Version 1)
Quarter: 2021Q1

REPORT INFORMATION
  Report Type: Spontaneous
  Country: US (occurrence: US)
  Receive Date: 20210105
  Receipt Date: 20210105
  Transmission Date: 20210419
  Serious: No
  Sender: FDA-Public Use
  Company Number: US-PFIZER INC-2020520179

PATIENT
  Age: 86 Year
  Sex: Male

DRUGS (1)
  1. XELJANZ XR [Suspect]
     Active Substance: TOFACITINIB CITRATE
     Dosage: 11 MG, 2X/DAY
     Dates: start: 20201219

REACTIONS (3)
  - Dyspepsia [Unknown]
  - Accidental overdose [Unknown]
  - Incorrect dose administered [Unknown]
